FAERS Safety Report 15766644 (Version 4)
Quarter: 2020Q2

REPORT INFORMATION
  Report Type: Spontaneous
  Country: FR (occurrence: FR)
  Receive Date: 20181227
  Receipt Date: 20200603
  Transmission Date: 20200713
  Serious: No
  Sender: FDA-Public Use
  Company Number: FR-PFIZER INC-2018523906

PATIENT
  Age: 41 Year
  Sex: Female

DRUGS (17)
  1. DACARBAZINE. [Suspect]
     Active Substance: DACARBAZINE
     Dosage: 730 MG
     Dates: start: 20171108
  2. VINBLASTINE [Suspect]
     Active Substance: VINBLASTINE
     Indication: HODGKIN^S DISEASE STAGE II
     Dosage: 6 MG/M2, CYCLIC (CHEMOTHERAPY CYCLES ON A 15-DAY OUTPATIENT BASIS)
  3. AMOXICILLIN TRIHYDRATE [Suspect]
     Active Substance: AMOXICILLIN
     Indication: MATERNAL THERAPY TO ENHANCE FOETAL LUNG MATURITY
  4. DACARBAZINE. [Suspect]
     Active Substance: DACARBAZINE
     Indication: HODGKIN^S DISEASE STAGE II
     Dosage: 375 MG/M2, CYCLIC (CHEMOTHERAPY CYCLES ON A 15-DAY OUTPATIENT BASIS)
  5. DEXAMETHASONE. [Suspect]
     Active Substance: DEXAMETHASONE
     Indication: PROPHYLAXIS OF NAUSEA AND VOMITING
     Dosage: 10 MG, UNK
     Route: 048
  6. DOXORUBICIN HCL [Suspect]
     Active Substance: DOXORUBICIN HYDROCHLORIDE
     Indication: HODGKIN^S DISEASE STAGE II
     Dosage: 25 MG/M2, CYCLIC (CHEMOTHERAPY CYCLES ON A 15-DAY OUTPATIENT BASIS)
  7. LANSOPRAZOLE. [Suspect]
     Active Substance: LANSOPRAZOLE
     Dosage: 30 MG, 1X/DAY
  8. PREDNISONE. [Suspect]
     Active Substance: PREDNISONE
     Indication: HODGKIN^S DISEASE
     Dosage: 80 MG, DAILY
  9. PREDNISONE. [Suspect]
     Active Substance: PREDNISONE
     Dosage: 40 MG, DAILY
  10. VALACICLOVIR [Suspect]
     Active Substance: VALACYCLOVIR HYDROCHLORIDE
     Dosage: 500 MG, 1X/DAY
  11. DOXORUBICIN HCL [Suspect]
     Active Substance: DOXORUBICIN HYDROCHLORIDE
     Dosage: 48 MG
     Dates: start: 20171108
  12. BLEOMYCIN [Suspect]
     Active Substance: BLEOMYCIN SULFATE
     Indication: HODGKIN^S DISEASE STAGE II
     Dosage: 10 MG/M2, CYCLIC (CHEMOTHERAPY CYCLES ON A 15-DAY OUTPATIENT BASIS)
  13. VINBLASTINE [Suspect]
     Active Substance: VINBLASTINE
     Dosage: 10 MG
     Dates: start: 20171108
  14. AMOXICILLIN TRIHYDRATE [Suspect]
     Active Substance: AMOXICILLIN
     Indication: ANTIBIOTIC THERAPY
     Dosage: UNK
  15. ONDANSETRON [Suspect]
     Active Substance: ONDANSETRON
     Indication: PROPHYLAXIS OF NAUSEA AND VOMITING
     Dosage: 8 MG, 2X/DAY
  16. BLEOMYCIN [Suspect]
     Active Substance: BLEOMYCIN SULFATE
     Dosage: 19.2 MG
     Dates: start: 20171108
  17. ENOXAPARIN [Suspect]
     Active Substance: ENOXAPARIN
     Dosage: UNK, 2X/DAY (4000 UI TWICE A DAY)

REACTIONS (1)
  - Maternal exposure during pregnancy [Unknown]
